FAERS Safety Report 17440561 (Version 1)
Quarter: 2020Q1

REPORT INFORMATION
  Report Type: Spontaneous
  Country: US (occurrence: US)
  Receive Date: 20200220
  Receipt Date: 20200220
  Transmission Date: 20200409
  Serious: Yes (Hospitalization, Other)
  Sender: FDA-Public Use
  Company Number: US-GLAXOSMITHKLINE-US2020GSK027913

PATIENT
  Age: 30 Year
  Sex: Male

DRUGS (4)
  1. TELMISARTAN. [Concomitant]
     Active Substance: TELMISARTAN
     Indication: HYPERTENSION
     Dosage: 80 MG, QD
  2. CARVEDILOL. [Suspect]
     Active Substance: CARVEDILOL
     Indication: HYPERTENSION
     Dosage: 6.25 MG, BID
  3. CETIRIZINE [Concomitant]
     Active Substance: CETIRIZINE HYDROCHLORIDE
     Indication: PRODUCT USED FOR UNKNOWN INDICATION
     Dosage: 10 MG, QD
  4. METOPROLOL SUCCINATE. [Suspect]
     Active Substance: METOPROLOL SUCCINATE
     Indication: HYPERTENSION
     Dosage: 25 MG, QD

REACTIONS (14)
  - Faeces pale [Recovered/Resolved]
  - Hepatic steatosis [Recovered/Resolved]
  - Nausea [Recovered/Resolved]
  - Alanine aminotransferase increased [Recovered/Resolved]
  - Hepatitis B surface antibody positive [Recovered/Resolved]
  - Aspartate aminotransferase increased [Recovered/Resolved]
  - Jaundice [Recovered/Resolved]
  - Transferrin saturation increased [Recovered/Resolved]
  - Chromaturia [Recovered/Resolved]
  - Hepatotoxicity [Recovered/Resolved]
  - Drug-induced liver injury [Recovered/Resolved]
  - Hypotension [Recovered/Resolved]
  - Vomiting [Recovered/Resolved]
  - Blood bilirubin increased [Recovered/Resolved]
